FAERS Safety Report 21188567 (Version 1)
Quarter: 2022Q3

REPORT INFORMATION
  Report Type: Spontaneous
  Country: US (occurrence: US)
  Receive Date: 20220809
  Receipt Date: 20220809
  Transmission Date: 20221027
  Serious: No
  Sender: FDA-Public Use
  Company Number: US-IGSA-BIG0018271

PATIENT
  Sex: Female

DRUGS (7)
  1. GAMUNEX-C [Suspect]
     Active Substance: HUMAN IMMUNOGLOBULIN G
     Indication: Immunodeficiency
     Dosage: 2.5 GRAM, Q.WK.
     Route: 042
     Dates: start: 20211108
  2. GAMUNEX-C [Suspect]
     Active Substance: HUMAN IMMUNOGLOBULIN G
     Indication: Immunoglobulins increased
     Dosage: 5 GRAM, Q.WK.
     Route: 042
     Dates: start: 20211108
  3. GAMUNEX-C [Suspect]
     Active Substance: HUMAN IMMUNOGLOBULIN G
     Indication: Immunodeficiency common variable
  4. GAMUNEX-C [Suspect]
     Active Substance: HUMAN IMMUNOGLOBULIN G
     Indication: Dermatitis atopic
  5. DUPIXENT [Concomitant]
     Active Substance: DUPILUMAB
     Indication: Primary immunodeficiency syndrome
     Dosage: UNK
     Dates: start: 20211108
  6. DUPIXENT [Concomitant]
     Active Substance: DUPILUMAB
     Indication: Immunodeficiency common variable
  7. DUPIXENT [Concomitant]
     Active Substance: DUPILUMAB
     Indication: Dermatitis atopic

REACTIONS (1)
  - Swelling [Unknown]
